FAERS Safety Report 11949138 (Version 1)
Quarter: 2016Q1

REPORT INFORMATION
  Report Type: Report from Study
  Country: US (occurrence: US)
  Receive Date: 20160125
  Receipt Date: 20160125
  Transmission Date: 20160526
  Serious: No
  Sender: FDA-Public Use
  Company Number: US-ABBVIE-15K-163-1329355-00

PATIENT
  Age: 65 Year
  Sex: Male
  Weight: 88.53 kg

DRUGS (2)
  1. HUMIRA [Suspect]
     Active Substance: ADALIMUMAB
     Indication: RHEUMATOID ARTHRITIS
     Dosage: PFS
     Route: 058
     Dates: start: 2005, end: 2008
  2. HUMIRA [Suspect]
     Active Substance: ADALIMUMAB
     Dosage: PENS
     Route: 058
     Dates: start: 2008

REACTIONS (5)
  - Product quality issue [Unknown]
  - Drug ineffective [Recovered/Resolved]
  - Rheumatoid arthritis [Unknown]
  - Pain [Unknown]
  - Myalgia [Recovered/Resolved]

NARRATIVE: CASE EVENT DATE: 201411
